FAERS Safety Report 7470730-6 (Version None)
Quarter: 2011Q2

REPORT INFORMATION
  Report Type: 
  Country: None (occurrence: None)
  Receive Date: 20110510
  Receipt Date: 20110427
  Transmission Date: 20111010
  Serious: Yes (Hospitalization)
  Sender: FDA-Public Use
  Company Number: PHHY2010MX50740

PATIENT
  Sex: Female

DRUGS (7)
  1. RASILEZ [Suspect]
     Indication: HYPERTENSION
     Dosage: 150 MG, UNK
     Route: 048
     Dates: start: 20100515
  2. REPAGLINIDE [Concomitant]
  3. RASILEZ [Suspect]
     Dosage: 0.5 DF, UNK
  4. DIGOXINE [Concomitant]
  5. INSULIN [Concomitant]
  6. MICARDIS HCT [Concomitant]
  7. METFORMIN HCL [Concomitant]

REACTIONS (9)
  - GASTROINTESTINAL VIRAL INFECTION [None]
  - NAUSEA [None]
  - DECREASED APPETITE [None]
  - ROTAVIRUS INFECTION [None]
  - HAEMATEMESIS [None]
  - FAECAL VOLUME INCREASED [None]
  - DIARRHOEA [None]
  - ABNORMAL FAECES [None]
  - ABDOMINAL PAIN [None]
